FAERS Safety Report 7098233-1 (Version None)
Quarter: 2010Q4

REPORT INFORMATION
  Report Type: 
  Country: None (occurrence: None)
  Receive Date: 20101112
  Receipt Date: 20101108
  Transmission Date: 20110411
  Serious: Yes (Death)
  Sender: FDA-Public Use
  Company Number: US-ABBOTT-10P-163-0683868-00

PATIENT
  Sex: Male
  Weight: 163.44 kg

DRUGS (2)
  1. MERIDIA [Suspect]
     Indication: WEIGHT DECREASED
     Dates: start: 20090901
  2. ARMOUR THYROID [Concomitant]
     Indication: THYROID DISORDER

REACTIONS (2)
  - CARDIOVASCULAR DISORDER [None]
  - HYPERTENSION [None]
